FAERS Safety Report 25226652 (Version 1)
Quarter: 2025Q2

REPORT INFORMATION
  Report Type: Spontaneous
  Country: US (occurrence: US)
  Receive Date: 20250422
  Receipt Date: 20250422
  Transmission Date: 20250716
  Serious: No
  Sender: JOHNSON AND JOHNSON
  Company Number: US-VIIV HEALTHCARE-US2025043735

PATIENT

DRUGS (1)
  1. RILPIVIRINE [Suspect]
     Active Substance: RILPIVIRINE
     Indication: HIV infection
     Route: 065
     Dates: start: 20250101

REACTIONS (1)
  - Blood HIV RNA increased [Not Recovered/Not Resolved]

NARRATIVE: CASE EVENT DATE: 20250401
